FAERS Safety Report 7332201-7 (Version None)
Quarter: 2011Q1

REPORT INFORMATION
  Report Type: 
  Country: None (occurrence: None)
  Receive Date: 20110304
  Receipt Date: 20110228
  Transmission Date: 20110831
  Serious: Yes (Death, Hospitalization, Other)
  Sender: FDA-Public Use
  Company Number: US-ROCHE-651305

PATIENT

DRUGS (2)
  1. TACROLIMUS [Suspect]
     Dosage: REDUCED DOSAGE
     Route: 065
  2. MYCOPHENOLATE MOFETIL [Suspect]
     Route: 065

REACTIONS (15)
  - SMALL CELL LUNG CANCER STAGE UNSPECIFIED [None]
  - INFECTION [None]
  - FUNGAL INFECTION [None]
  - SEPSIS [None]
  - HEPATIC NEOPLASM MALIGNANT RECURRENT [None]
  - BASAL CELL CARCINOMA [None]
  - PANCYTOPENIA [None]
  - LUNG ADENOCARCINOMA [None]
  - ABDOMINAL PAIN [None]
  - NAUSEA [None]
  - VOMITING [None]
  - DIARRHOEA [None]
  - NEUROTOXICITY [None]
  - CARDIOPULMONARY FAILURE [None]
  - LIVER TRANSPLANT REJECTION [None]
